FAERS Safety Report 7649993-X (Version None)
Quarter: 2011Q3

REPORT INFORMATION
  Report Type: 
  Country: None (occurrence: None)
  Receive Date: 20110802
  Receipt Date: 20110728
  Transmission Date: 20111222
  Serious: Yes (Other)
  Sender: FDA-Public Use
  Company Number: US-BRISTOL-MYERS SQUIBB COMPANY-15932015

PATIENT
  Age: 57 Year
  Sex: Male

DRUGS (5)
  1. ZANTAC [Concomitant]
  2. COUMADIN [Suspect]
     Dates: start: 20101201
  3. ZESTRIL [Concomitant]
  4. ADVAIR DISKUS 100/50 [Concomitant]
  5. LOPRESSOR [Concomitant]

REACTIONS (6)
  - SKIN DISCOLOURATION [None]
  - CONTUSION [None]
  - FATIGUE [None]
  - PAIN [None]
  - DYSPNOEA [None]
  - OEDEMA PERIPHERAL [None]
